FAERS Safety Report 17578229 (Version 8)
Quarter: 2020Q2

REPORT INFORMATION
  Report Type: Report from Study
  Country: RU (occurrence: RU)
  Receive Date: 20200324
  Receipt Date: 20200630
  Transmission Date: 20200713
  Serious: Yes (Hospitalization)
  Sender: FDA-Public Use
  Company Number: RU-EISAI MEDICAL RESEARCH-EC-2020-071044

PATIENT
  Age: 54 Year
  Sex: Male
  Weight: 81.25 kg

DRUGS (15)
  1. LENVATINIB [Suspect]
     Active Substance: LENVATINIB
     Route: 048
     Dates: start: 20200218, end: 20200223
  2. PEMBROLIZUMAB. [Suspect]
     Active Substance: PEMBROLIZUMAB
     Route: 041
     Dates: start: 20200218, end: 20200218
  3. MENADIONE SODIUM BISULFITE [Concomitant]
     Active Substance: MENADIONE
     Dates: start: 201901
  4. ALUMINUM HYDROXIDE;MAGNESIUM HYDROXIDE [Concomitant]
     Dates: start: 20191115
  5. PEMBROLIZUMAB. [Suspect]
     Active Substance: PEMBROLIZUMAB
     Indication: HEPATOCELLULAR CARCINOMA
     Route: 041
     Dates: start: 20190716, end: 20200128
  6. LOSARTAN POTASSIUM. [Concomitant]
     Active Substance: LOSARTAN POTASSIUM
     Dates: start: 20200110
  7. AMLODIPINE [Concomitant]
     Active Substance: AMLODIPINE BESYLATE
     Dates: start: 20200110
  8. SPIRONOLACTONE. [Concomitant]
     Active Substance: SPIRONOLACTONE
     Dates: start: 201801
  9. PANTOPRAZOLE [Concomitant]
     Active Substance: PANTOPRAZOLE
     Dates: start: 20191115
  10. MINERALS PLUS VITAMINS (UNSPECIFIED) [Concomitant]
     Dates: start: 20191115
  11. PEMBROLIZUMAB. [Suspect]
     Active Substance: PEMBROLIZUMAB
     Route: 041
     Dates: start: 20200403
  12. GLYCYRRHIZIN PHOSPHOLIPIDS [Concomitant]
     Dates: start: 201801
  13. URSODIOL. [Concomitant]
     Active Substance: URSODIOL
     Dates: start: 201801
  14. LENVATINIB [Suspect]
     Active Substance: LENVATINIB
     Indication: HEPATOCELLULAR CARCINOMA
     Dosage: STARTING DOSE AT 12MG, FLUCTUATED DOSAGE
     Route: 048
     Dates: start: 20190716, end: 20200217
  15. LENVATINIB [Suspect]
     Active Substance: LENVATINIB
     Route: 048
     Dates: start: 20200403

REACTIONS (1)
  - Gastrointestinal haemorrhage [Recovered/Resolved]

NARRATIVE: CASE EVENT DATE: 20200223
